APPROVED DRUG PRODUCT: ACITRETIN
Active Ingredient: ACITRETIN
Strength: 25MG
Dosage Form/Route: CAPSULE;ORAL
Application: A091455 | Product #002 | TE Code: AB
Applicant: BARR LABORATORIES INC
Approved: Apr 4, 2013 | RLD: No | RS: No | Type: RX